FAERS Safety Report 20087945 (Version 2)
Quarter: 2021Q4

REPORT INFORMATION
  Report Type: Report from Study
  Country: US (occurrence: US)
  Receive Date: 20211118
  Receipt Date: 20211122
  Transmission Date: 20220304
  Serious: Yes (Death, Other)
  Sender: FDA-Public Use
  Company Number: US-GILEAD-2021-0557240

PATIENT
  Sex: Male

DRUGS (8)
  1. AMBRISENTAN [Suspect]
     Active Substance: AMBRISENTAN
     Indication: Product used for unknown indication
     Dosage: 5 MG, QD
     Route: 065
     Dates: start: 20211001
  2. VITAMINS NOS [Concomitant]
     Active Substance: VITAMINS
  3. BUMETANIDE [Concomitant]
     Active Substance: BUMETANIDE
  4. AMITRIPTYLINE [Concomitant]
     Active Substance: AMITRIPTYLINE
  5. METOPROLOL [Concomitant]
     Active Substance: METOPROLOL
  6. LISINOPRIL [Concomitant]
     Active Substance: LISINOPRIL
  7. MELOXICAM [Concomitant]
     Active Substance: MELOXICAM
  8. HYDROCHLOROTHIAZIDE [Concomitant]
     Active Substance: HYDROCHLOROTHIAZIDE

REACTIONS (1)
  - Death [Fatal]
